FAERS Safety Report 4723757-9 (Version None)
Quarter: 2005Q3

REPORT INFORMATION
  Report Type: 
  Country: None (occurrence: None)
  Receive Date: 20050720
  Receipt Date: 20050720
  Transmission Date: 20060218
  Serious: No
  Sender: FDA-Public Use
  Company Number: None

PATIENT
  Sex: Male
  Weight: 91 kg

DRUGS (6)
  1. ZEVALIN [Suspect]
     Indication: FOLLICLE CENTRE LYMPHOMA, FOLLICULAR GRADE I, II, III
     Dosage: 48MCL IV ONCE
     Route: 042
     Dates: start: 20050405
  2. BUSPAR [Concomitant]
  3. DIOVAN [Concomitant]
  4. CLARITIN-D [Concomitant]
  5. MVT [Concomitant]
  6. ECHINECEA [Concomitant]

REACTIONS (2)
  - BONE MARROW DEPRESSION [None]
  - HEADACHE [None]
